FAERS Safety Report 26024188 (Version 1)
Quarter: 2025Q4

REPORT INFORMATION
  Report Type: Spontaneous
  Country: US (occurrence: US)
  Receive Date: 20251111
  Receipt Date: 20251111
  Transmission Date: 20260117
  Serious: Yes (Other)
  Sender: LUPIN
  Company Number: US-LUPIN PHARMACEUTICALS INC.-2025-10056

PATIENT
  Age: 30 Year
  Sex: Male

DRUGS (2)
  1. SERTRALINE [Suspect]
     Active Substance: SERTRALINE HYDROCHLORIDE
     Indication: Bipolar I disorder
     Dosage: (RECEIVED BETWEEN NOVEMBER 2022 TO SEPTEMBER 2023 FOR 4 TIMES)
     Route: 065
  2. SERTRALINE [Suspect]
     Active Substance: SERTRALINE HYDROCHLORIDE
     Indication: Psychotic disorder

REACTIONS (2)
  - Catatonia [Unknown]
  - Off label use [Unknown]
